FAERS Safety Report 11112278 (Version 1)
Quarter: 2015Q2

REPORT INFORMATION
  Report Type: Spontaneous
  Country: US (occurrence: US)
  Receive Date: 20150514
  Receipt Date: 20150514
  Transmission Date: 20150821
  Serious: No
  Sender: FDA-Public Use
  Company Number: US-PFIZER INC-2015158182

PATIENT
  Age: 65 Year
  Sex: Female
  Weight: 98 kg

DRUGS (1)
  1. LYRICA [Suspect]
     Active Substance: PREGABALIN
     Indication: NEUROPATHY PERIPHERAL
     Dosage: 300 MG, 2X/DAY

REACTIONS (3)
  - Condition aggravated [Not Recovered/Not Resolved]
  - Burning sensation [Not Recovered/Not Resolved]
  - Insomnia [Not Recovered/Not Resolved]
